FAERS Safety Report 9650488 (Version 1)
Quarter: 2013Q4

REPORT INFORMATION
  Report Type: Spontaneous
  Country: US (occurrence: US)
  Receive Date: 20131029
  Receipt Date: 20131029
  Transmission Date: 20140711
  Serious: No
  Sender: FDA-Public Use
  Company Number: US-B.I. PHARMACEUTICALS,INC./RIDGEFIELD-2013-BI-33097BP

PATIENT
  Age: 73 Year
  Sex: Female
  Weight: 99 kg

DRUGS (14)
  1. COMBIVENT [Suspect]
     Indication: CHRONIC OBSTRUCTIVE PULMONARY DISEASE
     Dosage: STRENGTH: 20 MCG / 100 MCG; DAILY DOSE: 80MCG/400MCG
     Route: 055
     Dates: start: 20130930, end: 20131002
  2. CODEINE [Concomitant]
     Indication: BACK PAIN
     Route: 048
     Dates: start: 2010
  3. CODEINE [Concomitant]
     Indication: ARTHRALGIA
  4. CLOBEX [Concomitant]
     Indication: ECZEMA
     Dosage: STRENGTH: 0.05%; DAILY DOSE: 0.05 %
     Dates: start: 2011
  5. CITRACAL [Concomitant]
     Indication: ARTHRITIS
     Dates: start: 1990
  6. FUROSEMIDE [Concomitant]
     Dosage: 20 MG
     Route: 048
     Dates: start: 2008
  7. ELIDEL [Concomitant]
     Indication: ECZEMA
     Dosage: STRENGTH: 1 %;
     Route: 061
     Dates: start: 2010
  8. SPIRNOLACTONE [Concomitant]
     Dosage: 50 MG
     Route: 048
  9. CITALOPRAM [Concomitant]
     Indication: DEPRESSION
     Dosage: 40 MG
     Route: 048
     Dates: start: 2012
  10. OXYBUTYNIN [Concomitant]
     Indication: HYPERTONIC BLADDER
     Dosage: 5 MG
     Route: 048
     Dates: start: 2008
  11. LEUTIN [Concomitant]
     Indication: EYE DISORDER
     Dates: start: 2010
  12. PREMARIN [Concomitant]
     Indication: MENOPAUSAL DISORDER
     Dosage: 0.625 MG
     Route: 048
     Dates: start: 1990
  13. ZOLPIDEM TARTRATE [Concomitant]
     Indication: SLEEP APNOEA SYNDROME
     Dosage: 5 MG
     Route: 048
     Dates: start: 2009
  14. GLUCOSAMINE [Concomitant]
     Indication: ARTHRITIS

REACTIONS (2)
  - Pulmonary congestion [Recovered/Resolved]
  - Rhinorrhoea [Recovered/Resolved]
